FAERS Safety Report 5275246-3 (Version None)
Quarter: 2007Q1

REPORT INFORMATION
  Report Type: 
  Country: None (occurrence: None)
  Receive Date: 20070326
  Receipt Date: 20070316
  Transmission Date: 20070707
  Serious: Yes (Life-Threatening, Hospitalization)
  Sender: FDA-Public Use
  Company Number: DE-BAYER-200710143BVD

PATIENT
  Age: 38 Year
  Sex: Female
  Weight: 67 kg

DRUGS (1)
  1. MOXIFLOXACIN HCL [Suspect]
     Indication: PROPHYLAXIS
     Route: 048
     Dates: start: 20070126, end: 20070126

REACTIONS (7)
  - ERYTHEMA [None]
  - HEADACHE [None]
  - HYPERTENSIVE CRISIS [None]
  - RESTLESSNESS [None]
  - SWELLING FACE [None]
  - TACHYCARDIA [None]
  - VERTIGO [None]
